FAERS Safety Report 4528012-8 (Version None)
Quarter: 2004Q4

REPORT INFORMATION
  Report Type: 
  Country: None (occurrence: None)
  Receive Date: 20041215
  Receipt Date: 20041031
  Transmission Date: 20050328
  Serious: Yes (Life-Threatening, Hospitalization)
  Sender: FDA-Public Use
  Company Number: DE-ABBOTT-04P-062-0279680-00

PATIENT
  Sex: Male
  Weight: 70 kg

DRUGS (6)
  1. HUMIRA [Suspect]
     Indication: RHEUMATOID ARTHRITIS
     Route: 058
     Dates: start: 20040623, end: 20041029
  2. DICLOFENAC [Concomitant]
     Indication: RHEUMATOID ARTHRITIS
     Route: 048
  3. IBUPROFEN [Concomitant]
     Indication: RHEUMATOID ARTHRITIS
  4. METHOTREXATE [Concomitant]
     Indication: RHEUMATOID ARTHRITIS
  5. ANTIBIOTICS [Concomitant]
     Indication: DRUG USE FOR UNKNOWN INDICATION
     Dates: end: 20041130
  6. ACTRAPID [Concomitant]
     Indication: DIABETES MELLITUS NON-INSULIN-DEPENDENT
     Route: 058

REACTIONS (14)
  - ASCITES [None]
  - CHILLS [None]
  - CHOLELITHIASIS [None]
  - CONFUSIONAL STATE [None]
  - CONVULSION [None]
  - FLUID RETENTION [None]
  - HEPATOCELLULAR DAMAGE [None]
  - INSULIN-REQUIRING TYPE II DIABETES MELLITUS [None]
  - LEUKOCYTOSIS [None]
  - MALLORY-WEISS SYNDROME [None]
  - MENINGITIS LISTERIA [None]
  - PYREXIA [None]
  - SPLENOMEGALY [None]
  - UPPER GASTROINTESTINAL HAEMORRHAGE [None]
